FAERS Safety Report 5513139-4 (Version None)
Quarter: 2007Q4

REPORT INFORMATION
  Report Type: 
  Country: None (occurrence: None)
  Receive Date: 20071108
  Receipt Date: 20071024
  Transmission Date: 20080405
  Serious: Yes (Other)
  Sender: FDA-Public Use
  Company Number: L07-NLD-05291-01

PATIENT
  Age: 25 Year
  Sex: Female

DRUGS (10)
  1. CITALOPRAM HYDROBROMIDE [Suspect]
     Indication: DEPRESSIVE SYMPTOM
     Dosage: 40 MG QD
     Dates: start: 20050801
  2. CITALOPRAM HYDROBROMIDE [Suspect]
     Indication: DEPRESSIVE SYMPTOM
     Dosage: 30 MG QD;
  3. CLOZAPINE [Suspect]
     Indication: SCHIZOAFFECTIVE DISORDER
     Dosage: 175 MG QD;PO
     Route: 048
     Dates: start: 20060204, end: 20060406
  4. CLOZAPINE [Suspect]
     Indication: SCHIZOAFFECTIVE DISORDER
     Dosage: 150 MG QD;PO
     Route: 048
     Dates: start: 20060113, end: 20060203
  5. CLOZAPINE [Suspect]
     Indication: SCHIZOAFFECTIVE DISORDER
     Dosage: 125 MG QD;PO
     Route: 048
     Dates: start: 20051208, end: 20051223
  6. CLOZAPINE [Suspect]
     Indication: SCHIZOAFFECTIVE DISORDER
     Dosage: 200 MG QD;PO
     Route: 048
     Dates: start: 20051202, end: 20051207
  7. CLOZAPINE [Suspect]
     Indication: SCHIZOAFFECTIVE DISORDER
     Dosage: 300 MG QD;PO
     Route: 048
     Dates: start: 20040601, end: 20051201
  8. RISPERIDONE [Concomitant]
  9. VALPROIC ACID [Concomitant]
  10. TEMAZEPAM [Concomitant]

REACTIONS (11)
  - ANTIDEPRESSANT DRUG LEVEL ABOVE THERAPEUTIC [None]
  - DEPRESSED MOOD [None]
  - DISEASE RECURRENCE [None]
  - DIZZINESS [None]
  - DRUG INTERACTION [None]
  - DRUG TOXICITY [None]
  - DYSPNOEA AT REST [None]
  - FATIGUE [None]
  - HALLUCINATIONS, MIXED [None]
  - PSYCHOTIC DISORDER [None]
  - WEIGHT INCREASED [None]
